FAERS Safety Report 4846963-1 (Version None)
Quarter: 2005Q4

REPORT INFORMATION
  Report Type: 
  Country: None (occurrence: None)
  Receive Date: 20051207
  Receipt Date: 20051130
  Transmission Date: 20060501
  Serious: Yes (Hospitalization)
  Sender: FDA-Public Use
  Company Number: US-JNJFOC-20051105112

PATIENT
  Age: 59 Year
  Sex: Female

DRUGS (2)
  1. REGULAR STRENGTH ACETAMINOPHEN [Suspect]
  2. REGULAR STRENGTH ACETAMINOPHEN [Suspect]
     Indication: ARTHRALGIA

REACTIONS (8)
  - ANOREXIA [None]
  - FATIGUE [None]
  - HEPATIC CIRRHOSIS [None]
  - HEPATIC NECROSIS [None]
  - HEPATOCELLULAR DAMAGE [None]
  - HEPATOMEGALY [None]
  - INCORRECT DRUG ADMINISTRATION DURATION [None]
  - SINUS ARRHYTHMIA [None]
